FAERS Safety Report 10017312 (Version 1)
Quarter: 2014Q1

REPORT INFORMATION
  Report Type: Spontaneous
  Country: US (occurrence: None)
  Receive Date: 20140314
  Receipt Date: 20140314
  Transmission Date: 20141002
  Serious: Yes (Other)
  Sender: FDA-Public Use
  Company Number: None

PATIENT
  Age: 31 Year
  Sex: Female
  Weight: 90.95 kg

DRUGS (1)
  1. WATER WASHABLE BASE [Suspect]
     Indication: DRY SKIN PROPHYLAXIS
     Dosage: LIBERAL AMOUNT, TWICE A DAY, TOPICAL TO FACE
     Route: 061
     Dates: start: 20140210

REACTIONS (6)
  - Application site rash [None]
  - Application site inflammation [None]
  - Product compounding quality issue [None]
  - Product physical consistency issue [None]
  - Skin irritation [None]
  - Rash erythematous [None]
